FAERS Safety Report 9463198 (Version 1)
Quarter: 2013Q3

REPORT INFORMATION
  Report Type: Spontaneous
  Country: FR (occurrence: FR)
  Receive Date: 20130818
  Receipt Date: 20130818
  Transmission Date: 20140515
  Serious: Yes (Hospitalization)
  Sender: FDA-Public Use
  Company Number: PHHY2013FR086704

PATIENT
  Age: 59 Year
  Sex: Female

DRUGS (5)
  1. PACLITAXEL [Suspect]
     Indication: OVARIAN CANCER
  2. CARBOPLATIN [Suspect]
     Indication: OVARIAN CANCER
  3. DOXORUBICIN [Suspect]
     Indication: OVARIAN CANCER
  4. BEVACIZUMAB [Suspect]
     Indication: OVARIAN CANCER
  5. CYCLOPHOSPHAMIDE [Suspect]
     Indication: OVARIAN CANCER

REACTIONS (9)
  - Cardiac failure [Unknown]
  - Renal failure acute [Unknown]
  - Anuria [Unknown]
  - Oliguria [Unknown]
  - Left ventricular dysfunction [Unknown]
  - Ventricular dysfunction [Unknown]
  - Hypokinesia [Unknown]
  - Dilatation ventricular [Unknown]
  - Peripheral coldness [Unknown]
